FAERS Safety Report 16244807 (Version 1)
Quarter: 2019Q2

REPORT INFORMATION
  Report Type: Other
  Country: FR (occurrence: FR)
  Receive Date: 20190426
  Receipt Date: 20190426
  Transmission Date: 20190711
  Serious: Yes (Other)
  Sender: FDA-Public Use
  Company Number: FR-ASTELLAS-2018US050459

PATIENT
  Age: 76 Year
  Sex: Male

DRUGS (1)
  1. XTANDI [Suspect]
     Active Substance: ENZALUTAMIDE
     Indication: PROSTATE CANCER METASTATIC
     Dosage: UNK UNK, UNKNOWN FREQ.
     Route: 048
     Dates: start: 201708

REACTIONS (7)
  - Foreign body in respiratory tract [Recovering/Resolving]
  - Productive cough [Recovering/Resolving]
  - Wrong technique in product usage process [Unknown]
  - Oesophageal pain [Recovering/Resolving]
  - Cough [Recovering/Resolving]
  - Product use complaint [Not Recovered/Not Resolved]
  - Aphonia [Recovering/Resolving]

NARRATIVE: CASE EVENT DATE: 201708
